FAERS Safety Report 9877070 (Version 1)
Quarter: 2014Q1

REPORT INFORMATION
  Report Type: Report from Study
  Country: CA (occurrence: CA)
  Receive Date: 20140206
  Receipt Date: 20140206
  Transmission Date: 20141002
  Serious: Yes (Other)
  Sender: FDA-Public Use
  Company Number: CA-JNJFOC-20140200920

PATIENT
  Age: 72 Year
  Sex: Female
  Weight: 79.38 kg

DRUGS (2)
  1. SIMPONI [Suspect]
     Indication: RHEUMATOID ARTHRITIS
     Route: 058
     Dates: start: 201302, end: 201303
  2. PREDNISONE [Concomitant]
     Route: 065

REACTIONS (2)
  - Localised infection [Unknown]
  - Rheumatoid arthritis [Unknown]
